FAERS Safety Report 12235476 (Version 1)
Quarter: 2016Q2

REPORT INFORMATION
  Report Type: Spontaneous
  Country: US (occurrence: US)
  Receive Date: 20160404
  Receipt Date: 20160404
  Transmission Date: 20160815
  Serious: Yes (Other)
  Sender: FDA-Public Use
  Company Number: US-THE MENTHOLATUM COMPANY-1050187

PATIENT
  Age: 46 Year
  Sex: Male
  Weight: 70 kg

DRUGS (1)
  1. TOPICAL ANALGESIC [Suspect]
     Active Substance: MENTHOL\METHYL SALICYLATE
     Route: 061
     Dates: start: 201601, end: 201601

REACTIONS (1)
  - Chemical burn of skin [Not Recovered/Not Resolved]

NARRATIVE: CASE EVENT DATE: 201601
